FAERS Safety Report 26211803 (Version 1)
Quarter: 2025Q4

REPORT INFORMATION
  Report Type: Spontaneous
  Country: CN (occurrence: CN)
  Receive Date: 20251230
  Receipt Date: 20251230
  Transmission Date: 20260118
  Serious: Yes (Other)
  Sender: ROCHE
  Company Number: CN-ROCHE-10000465986

PATIENT
  Age: 51 Year
  Sex: Female

DRUGS (7)
  1. TRASTUZUMAB [Suspect]
     Active Substance: TRASTUZUMAB
     Indication: Osteitis deformans
  2. PERTUZUMAB [Suspect]
     Active Substance: PERTUZUMAB
     Indication: Osteitis deformans
  3. PACLITAXEL [Suspect]
     Active Substance: PACLITAXEL
     Indication: Osteitis deformans
  4. DENOSUMAB [Concomitant]
     Active Substance: DENOSUMAB
     Route: 058
  5. TRASTUZUMAB DERUXTECAN [Concomitant]
     Active Substance: TRASTUZUMAB DERUXTECAN
  6. PREDNISONE [Concomitant]
     Active Substance: PREDNISONE
     Route: 048
  7. METHYLPREDNISOLONE [Concomitant]
     Active Substance: METHYLPREDNISOLONE

REACTIONS (5)
  - Interstitial lung disease [Unknown]
  - Gastrointestinal disorder [Unknown]
  - Constipation [Unknown]
  - Myelosuppression [Unknown]
  - Alopecia [Unknown]

NARRATIVE: CASE EVENT DATE: 20210613
